FAERS Safety Report 8862042 (Version 1)
Quarter: 2012Q4

REPORT INFORMATION
  Report Type: 
  Country: US (occurrence: US)
  Receive Date: 20121025
  Receipt Date: 20121025
  Transmission Date: 20130627
  Serious: No
  Sender: FDA-Public Use
  Company Number: US-TARO-2012P1052875

PATIENT
  Age: 70 Year
  Sex: Female
  Weight: 104.33 kg

DRUGS (8)
  1. CLOTRIMAZOLE [Suspect]
     Route: 061
     Dates: start: 20120601
  2. CLOTRIMAZOLE [Suspect]
     Route: 061
     Dates: start: 201207
  3. VITAMIN D [Concomitant]
  4. FISH OIL [Concomitant]
  5. COQ 10 [Concomitant]
  6. GARLIC [Concomitant]
  7. MULTIVITAMIN [Concomitant]
  8. CALCIUM [Concomitant]

REACTIONS (1)
  - Drug effect incomplete [Not Recovered/Not Resolved]
